FAERS Safety Report 12338427 (Version 2)
Quarter: 2016Q2

REPORT INFORMATION
  Report Type: Report from Study
  Country: US (occurrence: US)
  Receive Date: 20160505
  Receipt Date: 20160519
  Transmission Date: 20160815
  Serious: Yes (Death, Hospitalization)
  Sender: FDA-Public Use
  Company Number: US-BAYER-2016-080489

PATIENT
  Age: 59 Year
  Sex: Male
  Weight: 101.13 kg

DRUGS (17)
  1. RADIUM 223 [Suspect]
     Active Substance: RADIUM RA-223 DICHLORIDE
     Indication: METASTASES TO BONE
  2. PROCRIT [Concomitant]
     Active Substance: ERYTHROPOIETIN
     Dosage: 40000 U, PRN
     Dates: start: 20150928, end: 20160503
  3. XARELTO [Concomitant]
     Active Substance: RIVAROXABAN
     Indication: FACTOR V LEIDEN MUTATION
     Dosage: 15 MG, BID
     Route: 048
     Dates: start: 20151019, end: 201604
  4. EFFEXOR [Concomitant]
     Active Substance: VENLAFAXINE HYDROCHLORIDE
     Dosage: 75 MG, QD
     Route: 048
     Dates: start: 201510
  5. ACETAMINOPHEN W/HYDROCODONE [Concomitant]
     Active Substance: ACETAMINOPHEN\HYDROCODONE
     Dosage: 2 DF, TID
     Route: 048
  6. OXYCONTIN [Concomitant]
     Active Substance: OXYCODONE HYDROCHLORIDE
     Dosage: 20 MG, Q8HR
     Route: 048
     Dates: start: 20160411, end: 20160503
  7. OXYCODONE [Concomitant]
     Active Substance: OXYCODONE
     Dosage: 5 MG, Q 3-4H
     Dates: start: 20160411, end: 20160503
  8. DEXAMETHASONE [DEXAMETHASONE] [Concomitant]
     Indication: CONVULSION PROPHYLAXIS
     Dosage: 4 MG, BID
     Dates: start: 20050902, end: 201601
  9. DILAUDID [Concomitant]
     Active Substance: HYDROMORPHONE HYDROCHLORIDE
     Dosage: 0.8 MG, Q1HR
     Route: 042
  10. DEXAMETHASONE [DEXAMETHASONE] [Concomitant]
     Indication: CONVULSION PROPHYLAXIS
     Dosage: UNK
  11. ZYTIGA [Concomitant]
     Active Substance: ABIRATERONE ACETATE
     Dosage: 250 MG, QD
     Route: 048
  12. IBUPROFEN. [Concomitant]
     Active Substance: IBUPROFEN
     Dosage: 200 MG, TID
     Route: 048
     Dates: start: 201510, end: 20160503
  13. ASPIRIN. [Concomitant]
     Active Substance: ASPIRIN
     Dosage: 81 MG, QD
     Dates: start: 2006, end: 20160503
  14. XTANDI [Concomitant]
     Active Substance: ENZALUTAMIDE
     Dosage: 160 MG, HS
     Route: 048
  15. RADIUM 223 [Suspect]
     Active Substance: RADIUM RA-223 DICHLORIDE
     Indication: HORMONE-REFRACTORY PROSTATE CANCER
     Dosage: 139 ?CI, UNK
     Dates: start: 20160418
  16. DILAUDID [Concomitant]
     Active Substance: HYDROMORPHONE HYDROCHLORIDE
     Dosage: 0.5 MG, PRN
     Dates: start: 20160425, end: 20160503
  17. KEPPRA [Concomitant]
     Active Substance: LEVETIRACETAM
     Indication: CONVULSION PROPHYLAXIS
     Dosage: 500 MG, BID
     Route: 048
     Dates: start: 20160425, end: 20160503

REACTIONS (3)
  - Thrombocytopenia [Not Recovered/Not Resolved]
  - Traumatic intracranial haemorrhage [Fatal]
  - Prostate cancer [Fatal]

NARRATIVE: CASE EVENT DATE: 20160425
